FAERS Safety Report 25123904 (Version 2)
Quarter: 2025Q2

REPORT INFORMATION
  Report Type: Spontaneous
  Country: RU (occurrence: RU)
  Receive Date: 20250326
  Receipt Date: 20250407
  Transmission Date: 20250717
  Serious: Yes (Hospitalization, Other)
  Sender: BAYER
  Company Number: RU-BAYER-2025A039164

PATIENT
  Age: 41 Year
  Sex: Female

DRUGS (1)
  1. DIENOGEST\ESTRADIOL VALERATE [Suspect]
     Active Substance: DIENOGEST\ESTRADIOL VALERATE
     Route: 048

REACTIONS (6)
  - Hypertension [None]
  - Deafness bilateral [None]
  - Hypersensitivity [None]
  - Inappropriate schedule of product administration [None]
  - Suspected product quality issue [None]
  - Suspected counterfeit product [None]
